FAERS Safety Report 9633956 (Version 1)
Quarter: 2013Q4

REPORT INFORMATION
  Report Type: Spontaneous
  Country: BR (occurrence: BR)
  Receive Date: 20131021
  Receipt Date: 20131021
  Transmission Date: 20140711
  Serious: Yes (Other)
  Sender: FDA-Public Use
  Company Number: BR-PFIZER INC-2013294969

PATIENT
  Age: 65 Year
  Sex: Female
  Weight: 62 kg

DRUGS (6)
  1. XALATAN [Suspect]
     Indication: GLAUCOMA
     Dosage: 1 DROP IN BOTH EYES (3 UG), 1X/DAY
     Route: 047
     Dates: start: 20130614
  2. XALATAN [Suspect]
     Indication: CATARACT
  3. AZOPT [Concomitant]
     Indication: GLAUCOMA
     Dosage: 1 DROP IN BOTH EYES EVERY 12 HOURS
     Dates: start: 20130214
  4. AZOPT [Concomitant]
     Indication: CATARACT
  5. COMBIGAN [Concomitant]
     Indication: GLAUCOMA
     Dosage: 1 DROP IN BOTH EYES EVERY 12 HOURS
     Dates: start: 20130214
  6. COMBIGAN [Concomitant]
     Indication: CATARACT

REACTIONS (2)
  - Off label use [Not Recovered/Not Resolved]
  - Corneal deposits [Unknown]
